FAERS Safety Report 4301059-2 (Version None)
Quarter: 2004Q1

REPORT INFORMATION
  Report Type: 
  Country: None (occurrence: None)
  Receive Date: 20040219
  Receipt Date: 20040210
  Transmission Date: 20041129
  Serious: Yes (Life-Threatening, Hospitalization)
  Sender: FDA-Public Use
  Company Number: 200410695BCC

PATIENT
  Age: 61 Year
  Sex: Male

DRUGS (1)
  1. ALEVE (CAPLET) [Suspect]
     Indication: ABDOMINAL PAIN UPPER
     Dosage: 220 MG, ONCE,ORAL
     Route: 048
     Dates: start: 20040116

REACTIONS (5)
  - CARDIAC DISORDER [None]
  - HAEMATEMESIS [None]
  - HAEMATOCHEZIA [None]
  - MEDICATION ERROR [None]
  - ULCER HAEMORRHAGE [None]
